FAERS Safety Report 7905434-6 (Version None)
Quarter: 2011Q4

REPORT INFORMATION
  Report Type: 
  Country: None (occurrence: None)
  Receive Date: 20111109
  Receipt Date: 20111027
  Transmission Date: 20120403
  Serious: Yes (Hospitalization)
  Sender: FDA-Public Use
  Company Number: CA-MYLANLABS-2011S1022719

PATIENT
  Age: 36 Year
  Sex: Male

DRUGS (23)
  1. ALBUTEROL SULFATE AUTOHALER [Suspect]
     Indication: DYSPNOEA
     Dosage: THREE TIMES PER WEEK
     Route: 055
  2. ALBUTEROL SULFATE AUTOHALER [Suspect]
     Dosage: 3-4 PUFFS FOUR TIMES DAILY FOR SEVERAL DAYS
     Route: 055
  3. IPRATROPIUM BROMIDE [Concomitant]
     Dosage: ADDITIONAL DOSES ADMINISTERED VIA NEBULISER
     Route: 055
  4. ALBUTEROL SULFATE AUTOHALER [Suspect]
     Dosage: 3-4 PUFFS FOUR TIMES DAILY FOR SEVERAL DAYS
     Route: 055
  5. ALBUTEROL SULFATE AUTOHALER [Suspect]
     Dosage: 5MG EVERY 20 MINUTES FOR THREE DOSES VIA NEBULISER
     Route: 055
  6. ALBUTEROL SULFATE AUTOHALER [Suspect]
     Dosage: 5MG EVERY 20 MINUTES FOR THREE DOSES VIA NEBULISER
     Route: 055
  7. ALBUTEROL SULFATE AUTOHALER [Suspect]
     Dosage: ADDITIONAL DOSES ADMINISTERED VIA NEBULISER
     Route: 055
  8. FLUTICASONE PROPIONATE [Concomitant]
     Indication: RHINITIS ALLERGIC
     Dosage: THREE DAYS PER WEEK
     Route: 055
  9. ALBUTEROL SULFATE AUTOHALER [Suspect]
     Dosage: 3-4 PUFFS FOUR TIMES DAILY FOR SEVERAL DAYS
     Route: 055
  10. FLUTICASONE PROPIONATE [Concomitant]
     Indication: ASTHMA
     Dosage: THREE DAYS PER WEEK
     Route: 055
  11. ACETAMINOPHEN [Concomitant]
     Dosage: AS NEEDED
     Route: 065
  12. DICLOFENAC SODIUM [Concomitant]
     Dosage: 75MG DAILY
     Route: 065
  13. QUETIAPINE [Concomitant]
     Dosage: 75MG AS NEEDED AT NIGHT
     Route: 065
  14. IPRATROPIUM BROMIDE [Concomitant]
     Indication: ASTHMA
     Dosage: 250MICROG VIA NEBULISER
     Route: 055
  15. IPRATROPIUM BROMIDE [Concomitant]
     Dosage: 500MICROG EVERY 20 MINUTES FOR THREE DOSES VIA NEBULISER
     Route: 055
  16. ALBUTEROL SULFATE AUTOHALER [Suspect]
     Dosage: 2.5MG VIA NEBULISER ON PRESENTATION
     Route: 055
  17. ALBUTEROL SULFATE AUTOHALER [Suspect]
     Dosage: ADDITIONAL DOSES ADMINISTERED VIA NEBULISER
     Route: 055
  18. ALBUTEROL SULFATE AUTOHALER [Suspect]
     Dosage: ADDITIONAL DOSES ADMINISTERED VIA NEBULISER
     Route: 055
  19. ALBUTEROL SULFATE AUTOHALER [Suspect]
     Dosage: THREE TIMES PER WEEK
     Route: 055
  20. ALBUTEROL SULFATE AUTOHALER [Suspect]
     Dosage: 2.5MG VIA NEBULISER ON PRESENTATION
     Route: 055
  21. ALBUTEROL SULFATE AUTOHALER [Suspect]
     Indication: ASTHMA
     Dosage: THREE TIMES PER WEEK
     Route: 055
  22. ALBUTEROL SULFATE AUTOHALER [Suspect]
     Dosage: 2.5MG VIA NEBULISER ON PRESENTATION
     Route: 055
  23. ALBUTEROL SULFATE AUTOHALER [Suspect]
     Dosage: 5MG EVERY 20 MINUTES FOR THREE DOSES VIA NEBULISER
     Route: 055

REACTIONS (3)
  - HYPERGLYCAEMIA [None]
  - LACTIC ACIDOSIS [None]
  - HYPOKALAEMIA [None]
